FAERS Safety Report 6399888-7 (Version None)
Quarter: 2009Q4

REPORT INFORMATION
  Report Type: 
  Country: None (occurrence: None)
  Receive Date: 20091014
  Receipt Date: 20091005
  Transmission Date: 20100525
  Serious: Yes (Hospitalization)
  Sender: FDA-Public Use
  Company Number: IE-PFIZER INC-2009278682

PATIENT
  Age: 80 Year

DRUGS (10)
  1. LIPITOR [Suspect]
     Dosage: 80 MG, 1X/DAY
     Route: 048
     Dates: start: 20050601, end: 20090501
  2. ACETYLSALICYLIC ACID [Concomitant]
  3. CITALOPRAM [Concomitant]
  4. STALEVO 100 [Concomitant]
  5. LANSOPRAZOLE [Concomitant]
  6. ALENDRONATE SODIUM [Concomitant]
  7. PERINDOPRIL [Concomitant]
  8. CALCICHEW-D3 [Concomitant]
  9. DOMPERIDONE [Concomitant]
  10. FUROSEMIDE [Concomitant]

REACTIONS (1)
  - POLYMYOSITIS [None]
